FAERS Safety Report 14297243 (Version 2)
Quarter: 2020Q3

REPORT INFORMATION
  Report Type: Spontaneous
  Country: CA (occurrence: CA)
  Receive Date: 20171218
  Receipt Date: 20171219
  Transmission Date: 20201105
  Serious: Yes (Death, Other)
  Sender: FDA-Public Use
  Company Number: CA-CELGENEUS-CAN-20171104625

PATIENT
  Age: 58 Year
  Sex: Female

DRUGS (14)
  1. TREMELIMUMAB. [Suspect]
     Active Substance: TREMELIMUMAB
     Indication: PANCREATIC CARCINOMA
     Dosage: 75 MILLIGRAM
     Route: 041
     Dates: start: 20171102
  2. PANTOPRAZOLE [Concomitant]
     Active Substance: PANTOPRAZOLE
     Indication: DYSPEPSIA
  3. AMLODIPINE [Concomitant]
     Active Substance: AMLODIPINE BESYLATE
     Indication: HYPERTENSION
     Route: 065
     Dates: start: 2014, end: 20171103
  4. METFORMIN [Concomitant]
     Active Substance: METFORMIN HYDROCHLORIDE
     Indication: DIABETES MELLITUS
     Route: 065
     Dates: start: 2014, end: 20171103
  5. QUINAPRIL. [Concomitant]
     Active Substance: QUINAPRIL
     Indication: HYPERTENSION
     Route: 065
     Dates: start: 2014, end: 20171103
  6. PANTOPRAZOLE [Concomitant]
     Active Substance: PANTOPRAZOLE
     Indication: GASTROOESOPHAGEAL REFLUX DISEASE
  7. GEMCITABINE. [Suspect]
     Active Substance: GEMCITABINE
     Indication: PANCREATIC CARCINOMA
     Dosage: 1710 MILLIGRAM
     Route: 041
     Dates: start: 20171102
  8. PANTOPRAZOLE [Concomitant]
     Active Substance: PANTOPRAZOLE
     Indication: GASTROOESOPHAGEAL REFLUX DISEASE
     Route: 065
     Dates: start: 2014, end: 20171103
  9. PANTOPRAZOLE [Concomitant]
     Active Substance: PANTOPRAZOLE
     Indication: DYSPEPSIA
  10. MAGNESIUM OXIDE. [Concomitant]
     Active Substance: MAGNESIUM OXIDE
     Indication: NUTRITIONAL SUPPLEMENTATION
     Route: 065
     Dates: start: 20171030
  11. CALCIUM W/MAGNESIUM [Concomitant]
     Active Substance: CALCIUM\MAGNESIUM
     Indication: NUTRITIONAL SUPPLEMENTATION
     Route: 065
     Dates: start: 2014
  12. MEDI4736 (DURVALUMAB) [Suspect]
     Active Substance: DURVALUMAB
     Indication: PANCREATIC CARCINOMA
     Dosage: 1500 MILLIGRAM
     Route: 041
     Dates: start: 20171102
  13. ABRAXANE [Suspect]
     Active Substance: PACLITAXEL
     Indication: PANCREATIC CARCINOMA
     Dosage: 215 MILLIGRAM
     Route: 041
     Dates: start: 20171102
  14. CODEINE [Concomitant]
     Active Substance: CODEINE
     Indication: DYSPNOEA
     Route: 065
     Dates: start: 201709

REACTIONS (3)
  - Pancreatic carcinoma [Fatal]
  - Dyspnoea [Not Recovered/Not Resolved]
  - Pyrexia [Not Recovered/Not Resolved]

NARRATIVE: CASE EVENT DATE: 20171102
